FAERS Safety Report 6183028-3 (Version None)
Quarter: 2009Q2

REPORT INFORMATION
  Report Type: 
  Country: None (occurrence: None)
  Receive Date: 20090507
  Receipt Date: 20090504
  Transmission Date: 20091009
  Serious: Yes (Death)
  Sender: FDA-Public Use
  Company Number: US-ASTRAZENECA-2009UW09618

PATIENT
  Age: 16564 Day
  Sex: Female

DRUGS (3)
  1. SEROQUEL [Suspect]
     Indication: BIPOLAR DISORDER
     Route: 048
  2. RISPERDAL [Concomitant]
  3. ZYPREXA [Concomitant]

REACTIONS (1)
  - DEATH [None]
